FAERS Safety Report 10056607 (Version 6)
Quarter: 2014Q2

REPORT INFORMATION
  Report Type: Spontaneous
  Country: US (occurrence: US)
  Receive Date: 20140403
  Receipt Date: 20140624
  Transmission Date: 20141212
  Serious: Yes (Hospitalization, Disabling, Other)
  Sender: FDA-Public Use
  Company Number: US-ACTELION-A-US2014-96663

PATIENT
  Age: 19 Year
  Sex: Male

DRUGS (15)
  1. TRACLEER [Suspect]
     Indication: PULMONARY ARTERIAL HYPERTENSION
     Dosage: 62.5 MG, BID
     Route: 048
     Dates: start: 20100325
  2. SILDENAFIL [Concomitant]
     Dosage: 20 MG, TID
  3. LORAZEPAM [Concomitant]
     Dosage: 0.5 MG, Q6HRS
     Route: 048
  4. PREDNISONE [Concomitant]
     Dosage: 20 MG, BID
     Route: 048
  5. ACETAMINOPHEN [Concomitant]
     Dosage: 650 MG, Q4HRS
     Route: 048
  6. LANSOPRAZOLE [Concomitant]
     Dosage: 30 MG, QD
     Route: 048
  7. RISPERIDONE [Concomitant]
     Dosage: 0.75 MG, QD
  8. RISPERIDONE [Concomitant]
     Dosage: 1 MG, QPM
     Route: 048
  9. BECLOMETHASONE [Concomitant]
     Dosage: 2 PUFF, BID
  10. PAROXETINE [Concomitant]
     Dosage: 10 MG, QD
     Route: 048
  11. SPIRONOLACTONE [Concomitant]
     Dosage: 25 MG, QD
     Route: 048
  12. FUROSEMIDE [Concomitant]
     Dosage: 2 ML, Q6HRS
     Route: 048
  13. MELATONIN [Concomitant]
     Dosage: 3 MG, QPM
     Route: 048
  14. LEVOTHYROXINE [Concomitant]
     Dosage: 50 MCG, QD
  15. ALBUTEROL [Concomitant]
     Dosage: 2 PUFF, PRN

REACTIONS (13)
  - Colitis ulcerative [Recovering/Resolving]
  - Diarrhoea haemorrhagic [Recovering/Resolving]
  - Weight decreased [Recovering/Resolving]
  - Rectal haemorrhage [Recovering/Resolving]
  - Diverticulitis intestinal haemorrhagic [Recovering/Resolving]
  - Atypical pneumonia [Recovering/Resolving]
  - Pyrexia [Recovering/Resolving]
  - Abdominal pain upper [Recovering/Resolving]
  - Respiratory distress [Recovering/Resolving]
  - Fluid retention [Recovering/Resolving]
  - Oedema peripheral [Recovering/Resolving]
  - Dyspnoea [Recovering/Resolving]
  - Pleural effusion [Recovering/Resolving]
